FAERS Safety Report 7626597-6 (Version None)
Quarter: 2011Q3

REPORT INFORMATION
  Report Type: 
  Country: None (occurrence: None)
  Receive Date: 20110714
  Receipt Date: 20110628
  Transmission Date: 20111222
  Serious: Yes (Hospitalization)
  Sender: FDA-Public Use
  Company Number: UTC-008239

PATIENT
  Age: 68 Year
  Sex: Female
  Weight: 89.4 kg

DRUGS (4)
  1. ADCIRCA [Concomitant]
  2. DIURETICS (DIURETICS) [Concomitant]
  3. REMODULIN [Suspect]
     Indication: PULMONARY ARTERIAL HYPERTENSION
     Dosage: 26.784 UG/KG (0.0186 UG/KG, 1 IN 1 MIN),SUBCUTANEOUS
     Route: 058
     Dates: start: 20020531
  4. COUMADIN [Concomitant]

REACTIONS (3)
  - PSEUDOMONAS INFECTION [None]
  - SKIN ULCER [None]
  - SKIN INFECTION [None]
